FAERS Safety Report 17856401 (Version 8)
Quarter: 2021Q4

REPORT INFORMATION
  Report Type: Report from Study
  Country: US (occurrence: US)
  Receive Date: 20200603
  Receipt Date: 20211216
  Transmission Date: 20220304
  Serious: Yes (Other)
  Sender: FDA-Public Use
  Company Number: NVSC2020US153883

PATIENT
  Sex: Male

DRUGS (2)
  1. ENTRESTO [Suspect]
     Active Substance: SACUBITRIL\VALSARTAN
     Indication: Cardiac failure chronic
     Dosage: UNK UNK, UNKNOWN
     Route: 065
  2. ENTRESTO [Suspect]
     Active Substance: SACUBITRIL\VALSARTAN
     Dosage: 0.5 DOSAGE FORM (97/103 MG), BID
     Route: 048

REACTIONS (17)
  - Arrhythmia [Unknown]
  - Cellulitis [Unknown]
  - Staphylococcal infection [Unknown]
  - Cardiovascular disorder [Unknown]
  - Blood glucose decreased [Unknown]
  - Arthralgia [Unknown]
  - Decreased activity [Unknown]
  - Blood glucose increased [Unknown]
  - Diabetic wound [Unknown]
  - Weight increased [Unknown]
  - Pain in extremity [Unknown]
  - Diarrhoea [Unknown]
  - Weight decreased [Unknown]
  - Peripheral swelling [Unknown]
  - Oedema peripheral [Unknown]
  - Dyspnoea [Unknown]
  - Wrong technique in product usage process [Unknown]
